FAERS Safety Report 7199396-X (Version None)
Quarter: 2010Q4

REPORT INFORMATION
  Report Type: 
  Country: None (occurrence: None)
  Receive Date: 20101228
  Receipt Date: 20101221
  Transmission Date: 20110411
  Serious: Yes (Hospitalization)
  Sender: FDA-Public Use
  Company Number: FR-B.I. PHARMACEUTICALS,INC./RIDGEFIELD-2010-FF-01046FF

PATIENT
  Sex: Male

DRUGS (12)
  1. ATROVENT [Suspect]
     Route: 055
     Dates: start: 20101108, end: 20101110
  2. BRICANYL [Suspect]
     Dates: start: 20101108, end: 20101110
  3. SYMBICORT [Suspect]
     Route: 055
     Dates: start: 20101108, end: 20101108
  4. AUGMENTIN '125' [Suspect]
     Dosage: 3 G
     Route: 048
     Dates: start: 20101104, end: 20101108
  5. CIFLOX [Suspect]
     Dosage: 500 MG
     Route: 048
     Dates: start: 20101104, end: 20101108
  6. AMOXICILLIN [Suspect]
     Dosage: 3 G
     Route: 048
     Dates: start: 20101023, end: 20101029
  7. NEO CODION [Suspect]
     Route: 048
     Dates: start: 20101104, end: 20101108
  8. TRAMADOL [Suspect]
     Route: 048
     Dates: start: 20101029, end: 20101108
  9. OMEPRAZOLE [Suspect]
     Dosage: 10 MG
     Route: 048
     Dates: start: 20101029, end: 20101104
  10. KETOPROFEN [Suspect]
     Dosage: 200 MG
     Route: 048
     Dates: start: 20101029, end: 20101104
  11. DIMETANE [Suspect]
     Route: 048
     Dates: start: 20101023, end: 20101029
  12. CORTANCYL [Suspect]
     Dosage: 20 MG
     Route: 048
     Dates: start: 20101023, end: 20101027

REACTIONS (1)
  - LEUKOCYTOCLASTIC VASCULITIS [None]
